FAERS Safety Report 5476848-1 (Version None)
Quarter: 2007Q4

REPORT INFORMATION
  Report Type: 
  Country: None (occurrence: None)
  Receive Date: 20071003
  Receipt Date: 20071003
  Transmission Date: 20080405
  Serious: Yes (Death)
  Sender: FDA-Public Use
  Company Number: None

PATIENT
  Age: 70 Year
  Sex: Male
  Weight: 79.8331 kg

DRUGS (15)
  1. ERBITUX [Suspect]
     Indication: METASTASES TO BLADDER
     Dosage: 500MG  WEEKLY
     Dates: start: 20070713
  2. ERBITUX [Suspect]
     Indication: METASTASES TO BLADDER
     Dosage: 500MG  WEEKLY
     Dates: start: 20070720
  3. ERBITUX [Suspect]
     Indication: METASTASES TO BLADDER
     Dosage: 500MG  WEEKLY
     Dates: start: 20070727
  4. ERBITUX [Suspect]
     Indication: METASTASES TO BLADDER
     Dosage: 500MG  WEEKLY
     Dates: start: 20070802
  5. ERBITUX [Suspect]
     Indication: METASTASES TO BLADDER
     Dosage: 500MG  WEEKLY
     Dates: start: 20070809
  6. ERBITUX [Suspect]
     Indication: METASTASES TO BLADDER
     Dosage: 500MG  WEEKLY
     Dates: start: 20070816
  7. PACLITAXEL [Suspect]
     Indication: METASTASES TO BLADDER
     Dosage: PACLITAXEL  160MG  WK
     Dates: start: 20070713
  8. PACLITAXEL [Suspect]
     Indication: METASTASES TO BLADDER
     Dosage: PACLITAXEL  160MG  WK
     Dates: start: 20070720
  9. PACLITAXEL [Suspect]
     Indication: METASTASES TO BLADDER
     Dosage: PACLITAXEL  160MG  WK
     Dates: start: 20070727
  10. PACLITAXEL [Suspect]
     Indication: METASTASES TO BLADDER
     Dosage: PACLITAXEL  160MG  WK
     Dates: start: 20070802
  11. PACLITAXEL [Suspect]
     Indication: METASTASES TO BLADDER
     Dosage: PACLITAXEL  160MG  WK
     Dates: start: 20070809
  12. PACLITAXEL [Suspect]
     Indication: METASTASES TO BLADDER
     Dosage: PACLITAXEL  160MG  WK
     Dates: start: 20070816
  13. PROCRIT [Concomitant]
  14. ZOMETA [Concomitant]
  15. CIPROFLAXACIN [Concomitant]

REACTIONS (1)
  - METASTATIC CARCINOMA OF THE BLADDER [None]
